FAERS Safety Report 6490259-1 (Version None)
Quarter: 2009Q4

REPORT INFORMATION
  Report Type: 
  Country: None (occurrence: None)
  Receive Date: 20091211
  Receipt Date: 20090810
  Transmission Date: 20100525
  Serious: Yes (Hospitalization)
  Sender: FDA-Public Use
  Company Number: ES-ELI_LILLY_AND_COMPANY-ES200908002176

PATIENT
  Age: 64 Year
  Sex: Female

DRUGS (2)
  1. GEMZAR [Suspect]
     Indication: OVARIAN CANCER
     Dosage: 1000 MG/M2,EVERY 2 WEEKS
  2. PACLITAXEL [Concomitant]
     Indication: OVARIAN CANCER
     Dosage: 80 MG/M2, EVERY 2 WEEKS

REACTIONS (1)
  - RHABDOMYOLYSIS [None]
